FAERS Safety Report 11958206 (Version 1)
Quarter: 2016Q1

REPORT INFORMATION
  Report Type: Report from Study
  Country: PE (occurrence: PE)
  Receive Date: 20160126
  Receipt Date: 20160126
  Transmission Date: 20160526
  Serious: Yes (Death, Other)
  Sender: FDA-Public Use
  Company Number: PE-UCBSA-2016001937

PATIENT
  Age: 46 Year
  Sex: Male

DRUGS (1)
  1. LEVETIRACETAM. [Suspect]
     Active Substance: LEVETIRACETAM
     Indication: EPILEPSY
     Dosage: 1000 MG, 3X/DAY (TID)
     Route: 048
     Dates: start: 20151210

REACTIONS (1)
  - Gastric haemorrhage [Fatal]

NARRATIVE: CASE EVENT DATE: 20160109
